FAERS Safety Report 5064578-X (Version None)
Quarter: 2006Q3

REPORT INFORMATION
  Report Type: 
  Country: None (occurrence: None)
  Receive Date: 20060706
  Receipt Date: 20060524
  Transmission Date: 20061208
  Serious: No
  Sender: FDA-Public Use
  Company Number: 200613513BWH

PATIENT
  Age: 36 Year
  Sex: Male

DRUGS (1)
  1. LEVIRA (VARDENAFIL HYDROCHLORIDE) [Suspect]
     Indication: ERECTILE DYSFUNCTION
     Dosage: 20 MG , ONCE, ORAL
     Route: 048
     Dates: start: 20060523

REACTIONS (2)
  - DYSPEPSIA [None]
  - NASAL CONGESTION [None]
